FAERS Safety Report 10685178 (Version 1)
Quarter: 2014Q4

REPORT INFORMATION
  Report Type: Spontaneous
  Country: US (occurrence: None)
  Receive Date: 20141230
  Receipt Date: 20141230
  Transmission Date: 20150529
  Serious: No
  Sender: FDA-Public Use
  Company Number: None

PATIENT
  Age: 68 Year
  Sex: Female

DRUGS (1)
  1. CAPECITABINE. [Suspect]
     Active Substance: CAPECITABINE
     Indication: COLON CANCER
     Dosage: 2500 MG  MONDAY-FRIDAY PO
     Route: 048
     Dates: start: 20140320

REACTIONS (3)
  - Diarrhoea [None]
  - Blister [None]
  - Abdominal pain upper [None]

NARRATIVE: CASE EVENT DATE: 20141224
